FAERS Safety Report 19463055 (Version 8)
Quarter: 2025Q1

REPORT INFORMATION
  Report Type: Report from Study
  Country: FR (occurrence: FR)
  Receive Date: 20210625
  Receipt Date: 20250321
  Transmission Date: 20250409
  Serious: Yes (Other)
  Sender: ABBVIE
  Company Number: FR-ABBVIE-21K-056-3965712-00

PATIENT
  Age: 53 Year
  Sex: Male
  Weight: 94 kg

DRUGS (29)
  1. VENETOCLAX [Suspect]
     Active Substance: VENETOCLAX
     Indication: Chronic lymphocytic leukaemia
     Route: 048
     Dates: start: 20201103, end: 20201110
  2. VENETOCLAX [Suspect]
     Active Substance: VENETOCLAX
     Indication: Chronic lymphocytic leukaemia
     Route: 048
     Dates: start: 20201111, end: 20201116
  3. VENETOCLAX [Suspect]
     Active Substance: VENETOCLAX
     Indication: Chronic lymphocytic leukaemia
     Route: 048
     Dates: start: 20201117, end: 20201123
  4. VENETOCLAX [Suspect]
     Active Substance: VENETOCLAX
     Indication: Chronic lymphocytic leukaemia
     Route: 048
     Dates: start: 20201124, end: 20201130
  5. VENETOCLAX [Suspect]
     Active Substance: VENETOCLAX
     Indication: Chronic lymphocytic leukaemia
     Route: 048
     Dates: start: 20201201, end: 20201222
  6. VENETOCLAX [Suspect]
     Active Substance: VENETOCLAX
     Indication: Chronic lymphocytic leukaemia
     Route: 048
     Dates: start: 20201223, end: 20220222
  7. VENETOCLAX [Suspect]
     Active Substance: VENETOCLAX
     Indication: Chronic lymphocytic leukaemia
     Route: 048
     Dates: start: 20220317, end: 20230831
  8. VENETOCLAX [Suspect]
     Active Substance: VENETOCLAX
     Indication: Chronic lymphocytic leukaemia
     Route: 048
     Dates: start: 20220223, end: 20220316
  9. VENETOCLAX [Suspect]
     Active Substance: VENETOCLAX
     Indication: Chronic lymphocytic leukaemia
     Route: 048
     Dates: start: 20230901, end: 20230901
  10. FASTURTEC [Concomitant]
     Active Substance: RASBURICASE
     Indication: Prophylaxis
     Dates: start: 20201103
  11. SOLU-MEDROL [Concomitant]
     Active Substance: METHYLPREDNISOLONE SODIUM SUCCINATE
     Indication: Autoimmune haemolytic anaemia
     Dates: start: 20221028, end: 20221107
  12. ALPRAZOLAM [Concomitant]
     Active Substance: ALPRAZOLAM
     Indication: Prophylaxis
     Route: 065
     Dates: start: 20221028
  13. FOLIC ACID [Concomitant]
     Active Substance: FOLIC ACID
     Indication: Prophylaxis
     Dates: start: 20221102
  14. LEUCOVORIN CALCIUM [Concomitant]
     Active Substance: LEUCOVORIN CALCIUM
     Indication: Autoimmune haemolytic anaemia
     Dates: start: 20221028
  15. SOLUPRED [Concomitant]
     Indication: Autoimmune haemolytic anaemia
     Dates: start: 20220223, end: 20220313
  16. SOLUPRED [Concomitant]
     Indication: Autoimmune haemolytic anaemia
     Dates: start: 20221101
  17. CAPSICUM [Concomitant]
     Active Substance: CAPSICUM
     Indication: Product used for unknown indication
     Dates: start: 20220620
  18. AMITRIPTYLINE HYDROCHLORIDE [Concomitant]
     Active Substance: AMITRIPTYLINE HYDROCHLORIDE
     Indication: Glossodynia
     Dates: start: 20220202, end: 202302
  19. ARANESP [Concomitant]
     Active Substance: DARBEPOETIN ALFA
     Indication: Autoimmune haemolytic anaemia
     Dates: start: 20221030
  20. RITUXIMAB [Concomitant]
     Active Substance: RITUXIMAB
     Indication: Chronic lymphocytic leukaemia
     Dates: start: 20221027
  21. BACTRIM [Concomitant]
     Active Substance: SULFAMETHOXAZOLE\TRIMETHOPRIM
     Indication: Infection prophylaxis
     Dates: start: 20221108
  22. LOVENOX [Concomitant]
     Active Substance: ENOXAPARIN SODIUM
     Indication: Thrombosis prophylaxis
     Dates: start: 20221029
  23. PANTOPRAZOLE [Concomitant]
     Active Substance: PANTOPRAZOLE
     Indication: Gastrooesophageal reflux prophylaxis
     Dates: start: 20221028
  24. AMOXICILLIN [Concomitant]
     Active Substance: AMOXICILLIN
     Indication: Autoimmune haemolytic anaemia
     Dates: start: 20221020, end: 20221027
  25. VALACYCLOVIR HYDROCHLORIDE [Concomitant]
     Active Substance: VALACYCLOVIR HYDROCHLORIDE
     Indication: Antiviral prophylaxis
     Dates: start: 20221108
  26. FOLIC ACID [Concomitant]
     Active Substance: FOLIC ACID
     Indication: Autoimmune haemolytic anaemia
     Dates: start: 20221030
  27. OXYGEN [Concomitant]
     Active Substance: OXYGEN
     Indication: COVID-19
     Dates: start: 20220223, end: 20220308
  28. FOLIC ACID [Concomitant]
     Active Substance: FOLIC ACID
     Indication: Vitamin supplementation
     Dates: start: 20221102
  29. VITAMIN B12 [Concomitant]
     Active Substance: CYANOCOBALAMIN
     Indication: Autoimmune haemolytic anaemia
     Dates: start: 20221030

REACTIONS (17)
  - Intestinal sepsis [Recovered/Resolved]
  - Epilepsy [Recovered/Resolved]
  - Glossodynia [Not Recovered/Not Resolved]
  - COVID-19 [Recovered/Resolved]
  - Colitis [Not Recovered/Not Resolved]
  - Headache [Not Recovered/Not Resolved]
  - Weight decreased [Recovered/Resolved]
  - Mouth ulceration [Not Recovered/Not Resolved]
  - Hypercalcaemia [Unknown]
  - Diarrhoea [Recovered/Resolved]
  - Anaemia [Recovered/Resolved]
  - Neutropenia [Recovered/Resolved]
  - Neutropenia [Recovered/Resolved]
  - Neutropenia [Recovered/Resolved]
  - Neutropenia [Recovered/Resolved]
  - Autoimmune haemolytic anaemia [Recovered/Resolved]
  - Nasopharyngitis [Recovered/Resolved]

NARRATIVE: CASE EVENT DATE: 20201103
